FAERS Safety Report 16764546 (Version 3)
Quarter: 2019Q4

REPORT INFORMATION
  Report Type: Spontaneous
  Country: DE (occurrence: DE)
  Receive Date: 20190902
  Receipt Date: 20191023
  Transmission Date: 20200122
  Serious: Yes (Hospitalization)
  Sender: FDA-Public Use
  Company Number: DE-PFIZER INC-2019371642

PATIENT
  Age: 67 Year
  Sex: Female

DRUGS (3)
  1. BIMATO VISION [Concomitant]
     Dosage: UNK
  2. LATANOPROST. [Suspect]
     Active Substance: LATANOPROST
     Dosage: UNK
     Route: 047
     Dates: start: 201711, end: 201904
  3. LATANOPROST. [Suspect]
     Active Substance: LATANOPROST
     Indication: GLAUCOMA
     Dosage: 1 GTT, 1X/DAY (IN THE EVENING AT BEDTIME)
     Route: 047
     Dates: end: 201903

REACTIONS (3)
  - Cough [Recovered/Resolved]
  - Cardiac disorder [Unknown]
  - Insomnia [Unknown]

NARRATIVE: CASE EVENT DATE: 201804
